FAERS Safety Report 9852485 (Version 2)
Quarter: 2016Q3

REPORT INFORMATION
  Report Type: Spontaneous
  Country: JP (occurrence: JP)
  Receive Date: 20140129
  Receipt Date: 20160804
  Transmission Date: 20161109
  Serious: Yes (Death, Other)
  Sender: FDA-Public Use
  Company Number: JP-BRISTOL-MYERS SQUIBB COMPANY-20074001

PATIENT
  Age: 41 Year
  Sex: Female

DRUGS (2)
  1. HYDREA [Suspect]
     Active Substance: HYDROXYUREA
     Indication: ACUTE MYELOID LEUKAEMIA
     Route: 065
  2. ARABINOSYLCYTOSINE [Suspect]
     Active Substance: CYTARABINE
     Indication: ACUTE MYELOID LEUKAEMIA
     Route: 065

REACTIONS (3)
  - Off label use [Unknown]
  - Herpes simplex [Fatal]
  - Hepatitis fulminant [Fatal]
